FAERS Safety Report 7609588-0 (Version None)
Quarter: 2011Q3

REPORT INFORMATION
  Report Type: 
  Country: None (occurrence: None)
  Receive Date: 20110714
  Receipt Date: 20110712
  Transmission Date: 20111222
  Serious: Yes (Other)
  Sender: FDA-Public Use
  Company Number: US-CEPHALON-2011003680

PATIENT
  Sex: Male
  Weight: 89 kg

DRUGS (17)
  1. ZOFRAN [Concomitant]
     Dates: start: 20110608
  2. RITUXIMAB [Concomitant]
     Indication: CHRONIC LYMPHOCYTIC LEUKAEMIA
     Route: 042
     Dates: start: 20110413, end: 20110608
  3. ACYCLOVIR [Concomitant]
     Dates: start: 20110705
  4. IMMUNE GLOBULIN NOS [Concomitant]
     Dates: start: 20110706
  5. BACTRIM DS [Concomitant]
     Dates: start: 20110404, end: 20110701
  6. DURICEF [Concomitant]
     Dates: start: 20110408, end: 20110415
  7. DEXAMETHASONE [Concomitant]
     Dates: start: 20110608
  8. HYDROCORTISONE [Concomitant]
     Dates: start: 20110608
  9. FLONASE [Concomitant]
  10. DIFLUCAN [Concomitant]
  11. TREANDA [Suspect]
     Indication: CHRONIC LYMPHOCYTIC LEUKAEMIA
     Route: 042
     Dates: start: 20110414, end: 20110609
  12. ALLOPURINOL [Concomitant]
     Dates: start: 20110415, end: 20110608
  13. BENADRYL [Concomitant]
     Dates: start: 20110608
  14. PREDNISONE [Concomitant]
     Dates: start: 20110405, end: 20110701
  15. PRILOSEC [Concomitant]
     Dates: start: 20110518
  16. TYLENOL-500 [Concomitant]
  17. LORATADINE [Concomitant]

REACTIONS (4)
  - STEVENS-JOHNSON SYNDROME [None]
  - PHARYNGITIS [None]
  - PERIORBITAL OEDEMA [None]
  - CELLULITIS [None]
